FAERS Safety Report 7352318-0 (Version None)
Quarter: 2011Q1

REPORT INFORMATION
  Report Type: 
  Country: None (occurrence: None)
  Receive Date: 20110315
  Receipt Date: 20110304
  Transmission Date: 20110831
  Serious: Yes (Death, Other)
  Sender: FDA-Public Use
  Company Number: US-TEVA-269872USA

PATIENT
  Age: 53 Year
  Sex: Female

DRUGS (1)
  1. IRINOTECAN HYDROCHLORIDE [Suspect]

REACTIONS (3)
  - DEATH [None]
  - RECTAL CANCER [None]
  - HEPATIC NEOPLASM MALIGNANT [None]
